FAERS Safety Report 16426300 (Version 2)
Quarter: 2021Q4

REPORT INFORMATION
  Report Type: Spontaneous
  Country: US (occurrence: US)
  Receive Date: 20190613
  Receipt Date: 20211012
  Transmission Date: 20220303
  Serious: Yes (Other)
  Sender: FDA-Public Use
  Company Number: US-ELI_LILLY_AND_COMPANY-US201905016243

PATIENT
  Age: 55 Year
  Sex: Female

DRUGS (6)
  1. HUMALOG [Suspect]
     Active Substance: INSULIN LISPRO
     Indication: Type 1 diabetes mellitus
     Dosage: UNK, UNKNOWN
     Route: 058
  2. GLUCAGON [Suspect]
     Active Substance: GLUCAGON
     Indication: Product used for unknown indication
     Dosage: UNK, UNKNOWN
     Route: 065
  3. GLUCAGON [Suspect]
     Active Substance: GLUCAGON
     Indication: Product used for unknown indication
     Dosage: UNK, UNKNOWN
     Route: 065
  4. GLUCAGON [Suspect]
     Active Substance: GLUCAGON
     Dosage: UNK, UNKNOWN
     Route: 065
  5. GLUCAGON [Suspect]
     Active Substance: GLUCAGON
     Dosage: UNK, UNKNOWN
     Route: 065
  6. TRESIBA [Concomitant]
     Active Substance: INSULIN DEGLUDEC
     Indication: Product used for unknown indication
     Dosage: UNK, EACH MORNING
     Route: 065

REACTIONS (8)
  - Blood glucose decreased [Recovered/Resolved]
  - Hypoglycaemic unconsciousness [Recovered/Resolved]
  - Hypoglycaemic unconsciousness [Recovered/Resolved]
  - Middle insomnia [Unknown]
  - Injection site bruising [Not Recovered/Not Resolved]
  - Incorrect dose administered [Not Recovered/Not Resolved]
  - Diabetes mellitus inadequate control [Unknown]
  - Blood glucose increased [Unknown]

NARRATIVE: CASE EVENT DATE: 20190529
